FAERS Safety Report 24766043 (Version 1)
Quarter: 2024Q4

REPORT INFORMATION
  Report Type: Spontaneous
  Country: FR (occurrence: FR)
  Receive Date: 20241223
  Receipt Date: 20241223
  Transmission Date: 20250115
  Serious: Yes (Life-Threatening)
  Sender: PFIZER
  Company Number: FR-SERB-201500673

PATIENT
  Age: 71 Year
  Sex: Female

DRUGS (9)
  1. RIFABUTIN [Suspect]
     Active Substance: RIFABUTIN
     Indication: Lymph node tuberculosis
     Dosage: 150 MG, 4X/DAY
     Route: 048
     Dates: start: 20150121
  2. MOXIFLOXACIN HYDROCHLORIDE [Suspect]
     Active Substance: MOXIFLOXACIN HYDROCHLORIDE
     Indication: Lymph node tuberculosis
     Dosage: 400 MG, 1X/DAY
     Route: 048
     Dates: start: 20150121, end: 201502
  3. PYRAZINAMIDE [Suspect]
     Active Substance: PYRAZINAMIDE
     Indication: Lymph node tuberculosis
     Dosage: 500 MG, 4X/DAY
     Route: 048
     Dates: start: 20150121
  4. EZETIMIBE [Concomitant]
     Active Substance: EZETIMIBE
  5. GLIVEC [Concomitant]
     Active Substance: IMATINIB MESYLATE
  6. HUMALOG [Concomitant]
     Active Substance: INSULIN LISPRO
  7. METFORMIN [Concomitant]
     Active Substance: METFORMIN HYDROCHLORIDE
  8. TAHOR [Concomitant]
     Active Substance: ATORVASTATIN CALCIUM
  9. RAMIPRIL [Concomitant]
     Active Substance: RAMIPRIL

REACTIONS (2)
  - Bradycardia [Recovered/Resolved with Sequelae]
  - Atrioventricular block [Recovered/Resolved with Sequelae]

NARRATIVE: CASE EVENT DATE: 20150201
